FAERS Safety Report 7119265-0 (Version None)
Quarter: 2010Q4

REPORT INFORMATION
  Report Type: 
  Country: None (occurrence: None)
  Receive Date: 20101123
  Receipt Date: 20101117
  Transmission Date: 20110411
  Serious: Yes (Life-Threatening, Hospitalization, Other)
  Sender: FDA-Public Use
  Company Number: DE-ELI_LILLY_AND_COMPANY-DE201011004358

PATIENT
  Sex: Male

DRUGS (1)
  1. BYETTA [Suspect]
     Route: 058

REACTIONS (1)
  - RENAL FAILURE [None]
